FAERS Safety Report 24720619 (Version 1)
Quarter: 2024Q4

REPORT INFORMATION
  Report Type: Report from Study
  Country: US (occurrence: US)
  Receive Date: 20241211
  Receipt Date: 20241211
  Transmission Date: 20250115
  Serious: Yes (Hospitalization, Other)
  Sender: EMD SERONO INC
  Company Number: US-Merck KGaA-9081782

PATIENT
  Age: 63 Year
  Sex: Female

DRUGS (4)
  1. REBIF [Suspect]
     Active Substance: INTERFERON BETA-1A
     Indication: Multiple sclerosis
     Dosage: REBIF PREFILLED SYRINGE
  2. REBIF [Suspect]
     Active Substance: INTERFERON BETA-1A
     Dates: start: 2003, end: 20161224
  3. REBIF [Suspect]
     Active Substance: INTERFERON BETA-1A
     Dates: start: 20170125
  4. REBIF [Suspect]
     Active Substance: INTERFERON BETA-1A
     Dates: start: 199601

REACTIONS (5)
  - Myocardial infarction [Not Recovered/Not Resolved]
  - Cerebrovascular accident [Recovering/Resolving]
  - Atrial fibrillation [Recovering/Resolving]
  - Gait disturbance [Recovering/Resolving]
  - Injection site swelling [Recovering/Resolving]

NARRATIVE: CASE EVENT DATE: 20150101
